FAERS Safety Report 9852293 (Version 1)
Quarter: 2013Q4

REPORT INFORMATION
  Report Type: Spontaneous
  Country: US (occurrence: None)
  Receive Date: 20131127
  Receipt Date: 20131127
  Transmission Date: 20140711
  Serious: Yes (Other)
  Sender: FDA-Public Use
  Company Number: 224161LEO

PATIENT
  Age: 49 Year
  Sex: Female

DRUGS (2)
  1. PICATO [Suspect]
     Indication: ACTINIC KERATOSIS
     Dosage: (1 IN 1 D), TOPICAL
     Route: 061
     Dates: start: 20130917, end: 20130917
  2. PROVENTIL (SALBUTAMOL) (INHALATION POWDER) [Concomitant]

REACTIONS (12)
  - Asthma [None]
  - Pyrexia [None]
  - Application site warmth [None]
  - Application site erosion [None]
  - Application site swelling [None]
  - Application site vesicles [None]
  - Application site exfoliation [None]
  - Application site pain [None]
  - Application site erythema [None]
  - Application site scab [None]
  - Drug administered at inappropriate site [None]
  - Incorrect drug administration duration [None]
